FAERS Safety Report 18600216 (Version 1)
Quarter: 2020Q4

REPORT INFORMATION
  Report Type: Spontaneous
  Country: US (occurrence: US)
  Receive Date: 20201210
  Receipt Date: 20201210
  Transmission Date: 20210114
  Serious: Yes (Hospitalization)
  Sender: FDA-Public Use
  Company Number: None

PATIENT
  Age: 91 Year
  Sex: Male
  Weight: 54 kg

DRUGS (15)
  1. BISACODYL. [Concomitant]
     Active Substance: BISACODYL
     Dates: start: 20201204
  2. IBUPROFEN. [Concomitant]
     Active Substance: IBUPROFEN
     Dates: start: 20201207
  3. MULTIVITAMIN [Concomitant]
     Active Substance: VITAMINS
     Dates: start: 20201205
  4. ASPIRIN. [Concomitant]
     Active Substance: ASPIRIN
     Dates: start: 20201205
  5. ACETAMINOPHEN. [Concomitant]
     Active Substance: ACETAMINOPHEN
     Dates: start: 20201204
  6. TAMSULOSIN [Concomitant]
     Active Substance: TAMSULOSIN
     Dates: start: 20201205
  7. MILK OF MAGNESIA [Concomitant]
     Active Substance: MAGNESIUM HYDROXIDE
     Dates: start: 20201204
  8. PAROXETINE. [Concomitant]
     Active Substance: PAROXETINE
     Dates: start: 20201205
  9. PANTOPRAZOLE [Concomitant]
     Active Substance: PANTOPRAZOLE
     Dates: start: 20201205
  10. LORAZEPAM. [Concomitant]
     Active Substance: LORAZEPAM
     Dates: start: 20201205
  11. CHOLECALCIFEROL [Concomitant]
     Active Substance: CHOLECALCIFEROL
     Dates: start: 20201205
  12. DOCUSATE [Concomitant]
     Active Substance: DOCUSATE
     Dates: start: 20201205
  13. BAMLANIVIMAB. [Suspect]
     Active Substance: BAMLANIVIMAB
     Indication: COVID-19
     Dosage: ?          OTHER FREQUENCY:ONE TIME;?
     Route: 042
     Dates: start: 20201208, end: 20201208
  14. BUSPIRONE [Concomitant]
     Active Substance: BUSPIRONE HYDROCHLORIDE
     Dates: start: 20201204
  15. MELATONIN [Concomitant]
     Active Substance: MELATONIN
     Dates: start: 20201204

REACTIONS (9)
  - Pain in extremity [None]
  - Restlessness [None]
  - Oxygen saturation decreased [None]
  - COVID-19 pneumonia [None]
  - Abdominal rigidity [None]
  - Intentional product use issue [None]
  - Pyrexia [None]
  - Chills [None]
  - Cognitive disorder [None]

NARRATIVE: CASE EVENT DATE: 20201208
